FAERS Safety Report 4937495-0 (Version None)
Quarter: 2006Q1

REPORT INFORMATION
  Report Type: 
  Country: None (occurrence: None)
  Receive Date: 20060309
  Receipt Date: 20050204
  Transmission Date: 20060701
  Serious: Yes (Life-Threatening, Hospitalization)
  Sender: FDA-Public Use
  Company Number: DE-MERCK-0502DEU00047

PATIENT
  Age: 44 Year
  Sex: Female

DRUGS (9)
  1. VIOXX [Suspect]
     Indication: PAIN
     Route: 048
     Dates: start: 19990701, end: 20020101
  2. VIOXX [Suspect]
     Route: 048
     Dates: start: 20030121, end: 20040916
  3. VIOXX [Suspect]
     Indication: SPINAL DISORDER
     Route: 048
     Dates: start: 19990701, end: 20020101
  4. VIOXX [Suspect]
     Route: 048
     Dates: start: 20030121, end: 20040916
  5. TRAMADOL HYDROCHLORIDE [Concomitant]
     Indication: PAIN
     Route: 065
     Dates: start: 20000504
  6. CIMICIFUGA AND HYPERICIN [Concomitant]
     Indication: MENOPAUSE
     Route: 065
     Dates: start: 20010201
  7. CELANDINE [Concomitant]
     Indication: POST CHOLECYSTECTOMY SYNDROME
     Route: 065
     Dates: start: 20011206
  8. TIBOLONE [Concomitant]
     Indication: MENOPAUSE
     Route: 065
     Dates: start: 20010724, end: 20020101
  9. TIBOLONE [Concomitant]
     Route: 065
     Dates: start: 20020601

REACTIONS (11)
  - ABDOMINAL PAIN LOWER [None]
  - ACUTE CORONARY SYNDROME [None]
  - BRONCHITIS [None]
  - CORONARY ARTERY DISEASE [None]
  - DYSPNOEA EXERTIONAL [None]
  - HYPERTENSION [None]
  - MENORRHAGIA [None]
  - METRORRHAGIA [None]
  - MYOCARDIAL INFARCTION [None]
  - OEDEMA PERIPHERAL [None]
  - OVARIAN CYST [None]
